FAERS Safety Report 4285180-3 (Version None)
Quarter: 2004Q1

REPORT INFORMATION
  Report Type: 
  Country: None (occurrence: None)
  Receive Date: 20040203
  Receipt Date: 20040203
  Transmission Date: 20041129
  Serious: Yes (Life-Threatening, Hospitalization)
  Sender: FDA-Public Use
  Company Number: None

PATIENT
  Age: 71 Year
  Sex: Male

DRUGS (13)
  1. HEPARIN [Suspect]
     Indication: DEEP VEIN THROMBOSIS
     Dosage: 3000 UNITS SQ Q12H
     Dates: start: 20030811, end: 20030814
  2. HEPARIN [Suspect]
     Indication: DEEP VENOUS THROMBOSIS PROPHYLAXIS
     Dosage: 3000 UNITS SQ Q12H
     Dates: start: 20030811, end: 20030814
  3. HEPARIN [Suspect]
     Indication: DEEP VEIN THROMBOSIS
     Dosage: 3000 UNITS SQ Q12H
     Dates: start: 20030814, end: 20030815
  4. HEPARIN [Suspect]
     Indication: DEEP VENOUS THROMBOSIS PROPHYLAXIS
     Dosage: 3000 UNITS SQ Q12H
     Dates: start: 20030814, end: 20030815
  5. NOREPINEPHRINE [Concomitant]
  6. DILTIAZEM [Concomitant]
  7. AMIODARONE HCL [Concomitant]
  8. SUCRALFATE [Concomitant]
  9. FENTANYL [Concomitant]
  10. AMPICILLIN SODIUM/SULBACTAM SODIUM [Concomitant]
  11. MORPHINE [Concomitant]
  12. LEVOTHYROXINE SODIUM [Concomitant]
  13. LORAZEPAM [Concomitant]

REACTIONS (3)
  - DEEP VEIN THROMBOSIS [None]
  - LABORATORY TEST ABNORMAL [None]
  - PLATELET COUNT DECREASED [None]
